FAERS Safety Report 16261984 (Version 2)
Quarter: 2019Q2

REPORT INFORMATION
  Report Type: Spontaneous
  Country: US (occurrence: US)
  Receive Date: 20190501
  Receipt Date: 20190607
  Transmission Date: 20190711
  Serious: Yes (Life-Threatening, Hospitalization, Disabling)
  Sender: FDA-Public Use
  Company Number: US-AMREGENT-20190853

PATIENT
  Age: 72 Year
  Sex: Female
  Weight: 57.1 kg

DRUGS (3)
  1. INJECTAFER [Suspect]
     Active Substance: FERRIC CARBOXYMALTOSE
     Dosage: 750 MG/15 ML IN 100 ML 0.9 NS
     Route: 041
     Dates: start: 20190424, end: 20190424
  2. DRISDOL [Concomitant]
     Active Substance: ERGOCALCIFEROL
     Dosage: 50,000 UNITS ONCE EVERY SUNDAY
     Route: 048
  3. FERROUS SULFATE. [Concomitant]
     Active Substance: FERROUS SULFATE
     Dosage: 325 MG ONCE DAILY
     Route: 048

REACTIONS (8)
  - Respiratory distress [Unknown]
  - Pneumonia [Unknown]
  - Cough [Unknown]
  - Syncope [Unknown]
  - Respiratory arrest [Unknown]
  - Loss of consciousness [Unknown]
  - Back pain [Unknown]
  - Dyspnoea [Unknown]

NARRATIVE: CASE EVENT DATE: 20190424
